FAERS Safety Report 7887553-6 (Version None)
Quarter: 2011Q4

REPORT INFORMATION
  Report Type: 
  Country: None (occurrence: None)
  Receive Date: 20111103
  Receipt Date: 20111026
  Transmission Date: 20120403
  Serious: Yes (Hospitalization)
  Sender: FDA-Public Use
  Company Number: 2007BI020300

PATIENT
  Age: 37 Year
  Sex: Female
  Weight: 41 kg

DRUGS (2)
  1. AVONEX [Suspect]
     Indication: MULTIPLE SCLEROSIS
     Route: 030
     Dates: start: 20040617, end: 20070401
  2. AVONEX [Suspect]
     Route: 030
     Dates: start: 20101226

REACTIONS (5)
  - SEPSIS [None]
  - NERVE COMPRESSION [None]
  - SKIN LESION [None]
  - MUSCULOSKELETAL DISORDER [None]
  - INJECTION SITE PAIN [None]
